FAERS Safety Report 4898368-5 (Version None)
Quarter: 2006Q1

REPORT INFORMATION
  Report Type: 
  Country: None (occurrence: None)
  Receive Date: 20060131
  Receipt Date: 20060131
  Transmission Date: 20060701
  Serious: Yes (Other)
  Sender: FDA-Public Use
  Company Number: None

PATIENT
  Age: 26 Year
  Sex: Female
  Weight: 72.5755 kg

DRUGS (2)
  1. EFFEXOR XR [Suspect]
     Indication: ANXIETY
     Dosage: 225 DAILY PO
     Route: 048
     Dates: start: 20050201, end: 20051230
  2. EFFEXOR XR [Suspect]
     Indication: DEPRESSION
     Dosage: 225 DAILY PO
     Route: 048
     Dates: start: 20050201, end: 20051230

REACTIONS (7)
  - DISTURBANCE IN ATTENTION [None]
  - DRUG WITHDRAWAL SYNDROME [None]
  - FEELING ABNORMAL [None]
  - LOSS OF LIBIDO [None]
  - MOOD ALTERED [None]
  - MOOD SWINGS [None]
  - PARAESTHESIA [None]
